FAERS Safety Report 5152767-5 (Version None)
Quarter: 2006Q4

REPORT INFORMATION
  Report Type: 
  Country: None (occurrence: None)
  Receive Date: 20061116
  Receipt Date: 20061109
  Transmission Date: 20070319
  Serious: Yes (Hospitalization, Other)
  Sender: FDA-Public Use
  Company Number: US-AMGEN-US199840

PATIENT
  Age: 44 Year
  Sex: Female

DRUGS (2)
  1. ARANESP [Suspect]
     Indication: RENAL FAILURE CHRONIC
     Route: 065
  2. PREDNISONE TAB [Concomitant]

REACTIONS (8)
  - AMPUTATION [None]
  - CONFUSIONAL STATE [None]
  - DIALYSIS [None]
  - HYPOGLYCAEMIA [None]
  - HYPOTENSION [None]
  - INFECTION [None]
  - SKIN EXFOLIATION [None]
  - STEVENS-JOHNSON SYNDROME [None]
